FAERS Safety Report 8519445-3 (Version None)
Quarter: 2012Q3

REPORT INFORMATION
  Report Type: 
  Country: None (occurrence: None)
  Receive Date: 20120718
  Receipt Date: 20120716
  Transmission Date: 20120928
  Serious: No
  Sender: FDA-Public Use
  Company Number: US-PFIZER INC-2012172082

PATIENT
  Sex: Female
  Weight: 105.13 kg

DRUGS (1)
  1. VENLAFAXINE HCL [Suspect]
     Dosage: 75, UNITS UNKNOWN

REACTIONS (1)
  - DRUG INEFFECTIVE [None]
